FAERS Safety Report 17306168 (Version 1)
Quarter: 2020Q1

REPORT INFORMATION
  Report Type: Report from Study
  Country: BE (occurrence: BE)
  Receive Date: 20200123
  Receipt Date: 20200123
  Transmission Date: 20200409
  Serious: Yes (Hospitalization, Other)
  Sender: FDA-Public Use
  Company Number: BE-MYLANLABS-2020M1006562

PATIENT
  Age: 78 Year
  Sex: Female
  Weight: 83 kg

DRUGS (11)
  1. PACLITAXEL. [Suspect]
     Active Substance: PACLITAXEL
     Indication: OVARIAN CANCER
     Dosage: 175 MILLIGRAM/SQ. METER, Q3W
     Route: 042
     Dates: start: 20160105
  2. ASAFLOW [Concomitant]
     Active Substance: ASPIRIN
     Dosage: UNK
  3. TILDIEM [Concomitant]
     Active Substance: DILTIAZEM HYDROCHLORIDE
     Dosage: UNK
  4. BEVACIZUMAB. [Suspect]
     Active Substance: BEVACIZUMAB
     Indication: PRODUCT USED FOR UNKNOWN INDICATION
     Dosage: 1044 MILLIGRAM, Q3W
     Route: 042
     Dates: start: 20160105
  5. ZOLPIDEM [Concomitant]
     Active Substance: ZOLPIDEM TARTRATE
     Dosage: UNK
  6. CORUNO [Concomitant]
     Active Substance: MOLSIDOMINE
     Dosage: UNK
  7. PANTOMED                           /01263204/ [Concomitant]
     Active Substance: PANTOPRAZOLE SODIUM
     Dosage: UNK
  8. ATORVASTATINE                      /01326101/ [Concomitant]
     Active Substance: ATORVASTATIN
     Dosage: UNK
  9. BEVACIZUMAB. [Suspect]
     Active Substance: BEVACIZUMAB
     Dosage: 972 MILLIGRAM, Q3W
     Route: 042
     Dates: start: 20160219
  10. CARBOPLATIN. [Suspect]
     Active Substance: CARBOPLATIN
     Indication: OVARIAN CANCER
     Dosage: 1 DOSAGE FORM, Q3W (6 AUC Q3W)
     Route: 042
     Dates: start: 20160105, end: 20160219
  11. BEVACIZUMAB. [Suspect]
     Active Substance: BEVACIZUMAB
     Dosage: 1050 MILLIGRAM, Q3W
     Route: 042
     Dates: start: 20160610, end: 20161014

REACTIONS (5)
  - Neuropathy peripheral [Not Recovered/Not Resolved]
  - Bronchitis [Recovered/Resolved]
  - Orthostatic hypotension [Not Recovered/Not Resolved]
  - Pulmonary embolism [Recovered/Resolved]
  - Febrile neutropenia [Recovered/Resolved]

NARRATIVE: CASE EVENT DATE: 20160222
